FAERS Safety Report 10242107 (Version 1)
Quarter: 2014Q2

REPORT INFORMATION
  Report Type: Spontaneous
  Country: GB (occurrence: None)
  Receive Date: 20140613
  Receipt Date: 20140613
  Transmission Date: 20141212
  Serious: Yes (Hospitalization, Other)
  Sender: FDA-Public Use
  Company Number: AUR-APL-2014-06342

PATIENT
  Age: 71 Year
  Sex: Female

DRUGS (3)
  1. CIPROFLOXACIN 500MG (CIPROFLOXACIN) 500MG [Suspect]
     Indication: LUNG INFECTION PSEUDOMONAL
     Route: 048
     Dates: start: 20140410, end: 20140420
  2. VENTOLIN  /00139501/ (SALBUTAMOL) [Concomitant]
  3. KLARICID /00984601/  (CLARITHROMYCIN) [Concomitant]

REACTIONS (13)
  - Back pain [None]
  - Dizziness [None]
  - Malaise [None]
  - Headache [None]
  - Petechiae [None]
  - Photophobia [None]
  - Pyrexia [None]
  - Erythema [None]
  - Chills [None]
  - Swelling face [None]
  - Peripheral swelling [None]
  - Tendonitis [None]
  - Tremor [None]
